FAERS Safety Report 6928419-5 (Version None)
Quarter: 2010Q3

REPORT INFORMATION
  Report Type: 
  Country: None (occurrence: None)
  Receive Date: 20100817
  Receipt Date: 20100812
  Transmission Date: 20110219
  Serious: Yes (Other)
  Sender: FDA-Public Use
  Company Number: US-PFIZER INC-2010102168

PATIENT
  Sex: Female
  Weight: 52.608 kg

DRUGS (9)
  1. TOVIAZ [Suspect]
     Indication: INCONTINENCE
     Dosage: 4 MG, 1X/DAY
     Route: 048
     Dates: start: 20100805
  2. AMLODIPINE BESYLATE [Suspect]
     Indication: HYPERTENSION
     Dosage: 2.5 MG, 1X/DAY
     Route: 048
  3. COREG [Concomitant]
     Indication: HYPERTENSION
     Dosage: 40 MG, 1X/DAY
     Route: 048
  4. ALTACE [Concomitant]
     Indication: HYPERTENSION
     Dosage: 5 MG, 1X/DAY
     Route: 048
  5. CYTOMEL [Concomitant]
     Indication: THYROID DISORDER
     Dosage: 5 UG, 1X/DAY
     Route: 048
     Dates: start: 20100101
  6. CYMBALTA [Concomitant]
     Indication: NEUROPATHY PERIPHERAL
     Dosage: 60 MG, 1X/DAY
     Route: 048
  7. ATIVAN [Concomitant]
     Indication: SEDATIVE THERAPY
     Dosage: 2 MG, AS NEEDED
     Route: 048
  8. ATIVAN [Concomitant]
     Indication: BLOOD PRESSURE INCREASED
  9. SENNA [Concomitant]
     Indication: CONSTIPATION
     Dosage: UNK

REACTIONS (2)
  - DRUG INEFFECTIVE [None]
  - HYPERTENSION [None]
